FAERS Safety Report 8662369 (Version 5)
Quarter: 2012Q4

REPORT INFORMATION
  Report Type: 
  Country: US (occurrence: US)
  Receive Date: 20120712
  Receipt Date: 20121107
  Transmission Date: 20130627
  Serious: Yes (Disabling, Other)
  Sender: FDA-Public Use
  Company Number: US-009507513-1202USA01976

PATIENT

DRUGS (4)
  1. FOSAMAX [Suspect]
     Indication: OSTEOPOROSIS
     Dosage: 70 mg, qw
     Route: 048
     Dates: end: 20080207
  2. FOSAMAX [Suspect]
     Dosage: 70 mg, qw
     Route: 048
     Dates: start: 20100304
  3. ALENDRONATE TEVA [Suspect]
     Dosage: 70 mg, qw
     Dates: start: 20080310, end: 20100630
  4. ALENDRONATE TEVA [Suspect]
     Dosage: 70 mg, UNK
     Dates: start: 20100402, end: 201008

REACTIONS (48)
  - Thyroidectomy [Unknown]
  - Cataract operation [Unknown]
  - Osteonecrosis of jaw [Not Recovered/Not Resolved]
  - Depression [Not Recovered/Not Resolved]
  - Hypothyroidism [Unknown]
  - Hypercholesterolaemia [Unknown]
  - Rheumatoid arthritis [Unknown]
  - Oral infection [Unknown]
  - Impaired healing [Unknown]
  - Oral disorder [Unknown]
  - Impaired healing [Unknown]
  - Tooth disorder [Unknown]
  - Oral disorder [Unknown]
  - Dental caries [Unknown]
  - Alveolar osteitis [Unknown]
  - Alveolar osteitis [Unknown]
  - Tooth disorder [Unknown]
  - Fistula discharge [Unknown]
  - Adverse event [Unknown]
  - Tooth fracture [Unknown]
  - Intervertebral disc disorder [Unknown]
  - Lordosis [Unknown]
  - Scoliosis [Unknown]
  - Spinal osteoarthritis [Unknown]
  - Pharyngitis [Unknown]
  - Weight decreased [Unknown]
  - Sinusitis [Unknown]
  - Decreased appetite [Unknown]
  - Arthropathy [Unknown]
  - Spinal osteoarthritis [Unknown]
  - Back injury [Unknown]
  - Pernicious anaemia [Unknown]
  - Fatigue [Unknown]
  - Osteopenia [Unknown]
  - Intervertebral disc protrusion [Unknown]
  - Drug intolerance [Unknown]
  - Chronic obstructive pulmonary disease [Unknown]
  - Fall [Unknown]
  - Nicotine dependence [Unknown]
  - Hypertension [Unknown]
  - Headache [Unknown]
  - Back pain [Not Recovered/Not Resolved]
  - Gastrooesophageal reflux disease [Not Recovered/Not Resolved]
  - Arthralgia [Unknown]
  - Neck pain [Unknown]
  - Vomiting [Unknown]
  - Arthralgia [Unknown]
  - Pain in extremity [Unknown]
